FAERS Safety Report 8115292-5 (Version None)
Quarter: 2012Q1

REPORT INFORMATION
  Report Type: 
  Country: None (occurrence: None)
  Receive Date: 20120206
  Receipt Date: 20120125
  Transmission Date: 20120608
  Serious: Yes (Other)
  Sender: FDA-Public Use
  Company Number: US-BAYER-2012-010326

PATIENT
  Age: 74 Year
  Sex: Male

DRUGS (15)
  1. TRASYLOL [Suspect]
  2. PROTAMINE SULFATE [Concomitant]
     Dosage: UNK
     Dates: start: 20040227, end: 20040227
  3. MUCOMYST [Concomitant]
     Dosage: UNK
  4. PROCARDIA XL [Concomitant]
  5. NITROGLYCERIN [Concomitant]
     Dosage: UNK
     Dates: start: 20040227, end: 20040227
  6. FENTANYL CITRATE [Concomitant]
     Dosage: UNK
     Dates: start: 20040227, end: 20040227
  7. LASIX [Concomitant]
  8. MAGNESIUM SULFATE [Concomitant]
     Dosage: 2 G, UNK
     Dates: start: 20040227, end: 20040227
  9. LESCOL [Concomitant]
  10. ETOMIDATE [Concomitant]
     Dosage: 20 MG, UNK
     Dates: start: 20040227, end: 20040227
  11. HEPARIN [Concomitant]
     Dosage: 19000 U, UNK
     Route: 042
     Dates: start: 20040227, end: 20040227
  12. TRASYLOL [Suspect]
     Indication: CORONARY ARTERY BYPASS
     Dosage: 1 ML, INITIAL TEST DOSE, LOADING DOSE NOT PROVIDED
     Route: 042
     Dates: start: 20040227, end: 20040227
  13. LISINOPRIL [Concomitant]
  14. PENTOXIFYLLINE [Concomitant]
  15. LABETALOL HCL [Concomitant]
     Dosage: UNK
     Dates: start: 20040227, end: 20040227

REACTIONS (2)
  - BLOOD CREATININE INCREASED [None]
  - BLOOD UREA INCREASED [None]
